FAERS Safety Report 14124674 (Version 1)
Quarter: 2017Q4

REPORT INFORMATION
  Report Type: Spontaneous
  Country: US (occurrence: US)
  Receive Date: 20171025
  Receipt Date: 20171025
  Transmission Date: 20180321
  Serious: No
  Sender: FDA-Public Use
  Company Number: US-AUROBINDO-AUR-APU-2017-36007

PATIENT
  Sex: Male

DRUGS (3)
  1. CARVEDILOL TABLETS 6.25 MG [Suspect]
     Active Substance: CARVEDILOL
     Indication: CARDIAC INFECTION
     Dosage: UNK, TWO TIMES A DAY
     Route: 065
     Dates: start: 2002
  2. DIOVAN [Concomitant]
     Active Substance: VALSARTAN
     Indication: PRODUCT USED FOR UNKNOWN INDICATION
  3. ASPIRIN 81 [Concomitant]
     Active Substance: ASPIRIN
     Indication: PRODUCT USED FOR UNKNOWN INDICATION

REACTIONS (2)
  - Swelling face [Not Recovered/Not Resolved]
  - Temperature intolerance [Not Recovered/Not Resolved]
